FAERS Safety Report 6160469-1 (Version None)
Quarter: 2009Q2

REPORT INFORMATION
  Report Type: 
  Country: None (occurrence: None)
  Receive Date: 20090420
  Receipt Date: 20090415
  Transmission Date: 20091009
  Serious: Yes (Hospitalization, Other)
  Sender: FDA-Public Use
  Company Number: US-BAYER-200813832BCC

PATIENT
  Age: 63 Year
  Sex: Female
  Weight: 58 kg

DRUGS (4)
  1. ALEVE [Suspect]
     Indication: ARTHRALGIA
     Dosage: UNIT DOSE: 440 MG
     Route: 048
     Dates: start: 20080912, end: 20080919
  2. ASPIRIN [Concomitant]
     Dosage: BUFFERED, EVERY OTHER DAY
  3. CALCIUM [Concomitant]
  4. VITAMIN [Concomitant]

REACTIONS (4)
  - ABDOMINAL RIGIDITY [None]
  - DYSURIA [None]
  - NEPHROLITHIASIS [None]
  - RENAL PAIN [None]
